FAERS Safety Report 8001620-8 (Version None)
Quarter: 2011Q4

REPORT INFORMATION
  Report Type: 
  Country: None (occurrence: None)
  Receive Date: 20111222
  Receipt Date: 20070327
  Transmission Date: 20120403
  Serious: No
  Sender: FDA-Public Use
  Company Number: US-GLAXOSMITHKLINE-A0634864A

PATIENT
  Age: 46 Year
  Sex: Female

DRUGS (1)
  1. NICOTINE POLACRILEX [Suspect]
     Indication: EX-TOBACCO USER
     Dates: start: 20070102

REACTIONS (5)
  - ORAL PAIN [None]
  - TOOTH DISORDER [None]
  - DEVICE COLOUR ISSUE [None]
  - MOUTH ULCERATION [None]
  - PRODUCT QUALITY ISSUE [None]
